FAERS Safety Report 9042688 (Version 1)
Quarter: 2013Q1

REPORT INFORMATION
  Report Type: Report from Study
  Country: US (occurrence: US)
  Receive Date: 20130129
  Receipt Date: 20130129
  Transmission Date: 20140127
  Serious: No
  Sender: FDA-Public Use
  Company Number: US-009507513-1301USA012988

PATIENT
  Sex: Female
  Weight: 77.96 kg

DRUGS (4)
  1. RIBAVIRIN [Suspect]
     Indication: HEPATITIS C
     Dosage: UNK
  2. PEGINTERFERON ALFA-2A [Suspect]
     Indication: HEPATITIS C
  3. GS-5885 [Suspect]
     Indication: HEPATITIS C
     Dosage: 30 MG, UNK
     Route: 048
  4. GS-9451 [Suspect]
     Indication: HEPATITIS C

REACTIONS (1)
  - Overdose [Unknown]
